FAERS Safety Report 23883492 (Version 1)
Quarter: 2024Q2

REPORT INFORMATION
  Report Type: Spontaneous
  Country: TR (occurrence: TR)
  Receive Date: 20240522
  Receipt Date: 20240522
  Transmission Date: 20240715
  Serious: Yes (Life-Threatening, Hospitalization)
  Sender: FDA-Public Use
  Company Number: TR-002147023-NVSC2024TR107332

PATIENT
  Age: 46 Year
  Sex: Female

DRUGS (2)
  1. TEGRETOL [Suspect]
     Active Substance: CARBAMAZEPINE
     Indication: Neuralgia
     Dosage: UNK
     Route: 065
  2. TRILEPTAL [Suspect]
     Active Substance: OXCARBAZEPINE
     Indication: Neuralgia
     Dosage: UNK
     Route: 065

REACTIONS (8)
  - Headache [Unknown]
  - Nausea [Unknown]
  - Vomiting [Unknown]
  - Measles [Unknown]
  - Near death experience [Unknown]
  - Hypersensitivity [Unknown]
  - Pain [Unknown]
  - Back pain [Unknown]
